FAERS Safety Report 17969916 (Version 1)
Quarter: 2020Q3

REPORT INFORMATION
  Report Type: Spontaneous
  Country: IE (occurrence: IE)
  Receive Date: 20200701
  Receipt Date: 20200701
  Transmission Date: 20201103
  Serious: Yes (Life-Threatening)
  Sender: FDA-Public Use
  Company Number: IE-PERRIGO-20IE008928

PATIENT

DRUGS (4)
  1. PARACETAMOL [Suspect]
     Active Substance: ACETAMINOPHEN
     Dosage: UNK
     Route: 042
  2. FLUCLOXACILLIN [Suspect]
     Active Substance: FLUCLOXACILLIN
     Indication: STAPHYLOCOCCAL BACTERAEMIA
  3. PARACETAMOL [Suspect]
     Active Substance: ACETAMINOPHEN
     Indication: PAIN
     Dosage: PO/IV 1 GRAM 4 TIMES A DAY
     Route: 048
     Dates: start: 20191015, end: 20191120
  4. FLUCLOXACILLIN [Suspect]
     Active Substance: FLUCLOXACILLIN
     Indication: ARTHRITIS BACTERIAL
     Dosage: 2 G EVERY 4 HOURS
     Route: 042
     Dates: start: 20191015, end: 20191120

REACTIONS (2)
  - Metabolic acidosis [Recovered/Resolved]
  - Pyroglutamic acidosis [Recovered/Resolved]

NARRATIVE: CASE EVENT DATE: 20191120
